FAERS Safety Report 24637283 (Version 5)
Quarter: 2025Q1

REPORT INFORMATION
  Report Type: Report from Study
  Country: US (occurrence: US)
  Receive Date: 20241119
  Receipt Date: 20250303
  Transmission Date: 20250408
  Serious: Yes (Life-Threatening)
  Sender: NOVARTIS
  Company Number: US-002147023-NVSC2024US221766

PATIENT
  Sex: Female

DRUGS (3)
  1. KESIMPTA [Suspect]
     Active Substance: OFATUMUMAB
     Indication: Product used for unknown indication
     Route: 065
     Dates: start: 20241025
  2. MELATONIN [Concomitant]
     Active Substance: MELATONIN
     Indication: Product used for unknown indication
     Route: 065
  3. TYLENOL [Concomitant]
     Active Substance: ACETAMINOPHEN
     Indication: Product used for unknown indication
     Route: 065

REACTIONS (19)
  - Feeling abnormal [Unknown]
  - Influenza like illness [Unknown]
  - Pyrexia [Unknown]
  - Chills [Unknown]
  - Stress [Unknown]
  - Tremor [Unknown]
  - Muscle twitching [Unknown]
  - Fatigue [Unknown]
  - Insomnia [Unknown]
  - Middle insomnia [Unknown]
  - Paraesthesia [Unknown]
  - Arthralgia [Unknown]
  - Back pain [Unknown]
  - Asthenia [Unknown]
  - JC polyomavirus test positive [Unknown]
  - Weight increased [Unknown]
  - Lethargy [Unknown]
  - Pain [Unknown]
  - Apathy [Unknown]
